FAERS Safety Report 9748301 (Version 2)
Quarter: 2013Q4

REPORT INFORMATION
  Report Type: Spontaneous
  Country: DE (occurrence: None)
  Receive Date: 20131209
  Receipt Date: 20131226
  Transmission Date: 20140711
  Serious: Yes (Hospitalization)
  Sender: FDA-Public Use
  Company Number: TTX201300197

PATIENT
  Sex: Female

DRUGS (13)
  1. MARQIBO [Suspect]
     Indication: NON-HODGKIN^S LYMPHOMA
     Dosage: 3.2 MG, O.P.D, IV
     Route: 042
     Dates: start: 20130924
  2. CYCLOPHOSPHAMIDE [Suspect]
     Indication: NON-HODGKIN^S LYMPHOMA
     Dosage: 607.5MG, O.P.D, IV
     Route: 042
     Dates: start: 20130924
  3. DOXORUBICIN [Suspect]
     Indication: NON-HODGKIN^S LYMPHOMA
     Dosage: 40.5 MG, O.P.D, IV
     Route: 042
     Dates: start: 20130924
  4. PREDNISON [Suspect]
     Indication: NON-HODGKIN^S LYMPHOMA
     Dosage: 100 MG, 5X O.P.D. ORAL
     Route: 048
     Dates: start: 20130924
  5. RITUXIMAB (RITUXIMAB) [Concomitant]
  6. PEGFILGRASTIM (PEGFILGRASTIM) [Concomitant]
  7. BISOPOROLOL (BISOPROLOL) [Concomitant]
  8. RAMIPRIL (RAMIPRIL) [Concomitant]
  9. HCT (HYDROCHLOROTHIAZIDE) [Concomitant]
  10. PANTOPRAZOL (PANTOPRAZOLE SODIUM) [Concomitant]
  11. XARELTO (RIVAROXABAN) [Concomitant]
  12. TRAMAL (TRAMADOL HYDROCHLORIDE) [Concomitant]
  13. MCP (METOCLOPRAMIDE) [Concomitant]

REACTIONS (1)
  - Oesophageal candidiasis [None]
